FAERS Safety Report 6959380-5 (Version None)
Quarter: 2010Q3

REPORT INFORMATION
  Report Type: 
  Country: None (occurrence: None)
  Receive Date: 20100831
  Receipt Date: 20100831
  Transmission Date: 20110219
  Serious: Yes (Hospitalization)
  Sender: FDA-Public Use
  Company Number: None

PATIENT
  Sex: Male
  Weight: 87.4 kg

DRUGS (1)
  1. TEMOZOLOMIDE [Suspect]
     Dosage: 1750 MG

REACTIONS (2)
  - PNEUMONIA [None]
  - PULMONARY EMBOLISM [None]
